FAERS Safety Report 7014399-3 (Version None)
Quarter: 2010Q3

REPORT INFORMATION
  Report Type: 
  Country: None (occurrence: None)
  Receive Date: 20100927
  Receipt Date: 20100917
  Transmission Date: 20110219
  Serious: Yes (Hospitalization, Other)
  Sender: FDA-Public Use
  Company Number: US-ELI_LILLY_AND_COMPANY-US201009005313

PATIENT
  Sex: Female

DRUGS (6)
  1. HUMULIN 70/30 [Suspect]
     Indication: TYPE 2 DIABETES MELLITUS
     Dosage: 11 U, EACH MORNING
  2. HUMULIN 70/30 [Suspect]
     Dosage: 6 U, EACH EVENING
  3. HUMULIN N [Suspect]
  4. HUMULIN R [Suspect]
  5. METFORMIN HCL [Concomitant]
     Dosage: 500 MG, 2/D
  6. NITROGLYCERIN [Concomitant]
     Indication: CARDIAC FAILURE CONGESTIVE

REACTIONS (7)
  - ANGIOPATHY [None]
  - ARTHRITIS [None]
  - ARTHROPATHY [None]
  - CARDIAC FAILURE CONGESTIVE [None]
  - CONFUSIONAL STATE [None]
  - DEPRESSED LEVEL OF CONSCIOUSNESS [None]
  - PLEURAL EFFUSION [None]
